FAERS Safety Report 5763295-8 (Version None)
Quarter: 2008Q2

REPORT INFORMATION
  Report Type: 
  Country: None (occurrence: None)
  Receive Date: 20080604
  Receipt Date: 20080604
  Transmission Date: 20081010
  Serious: Yes (Other)
  Sender: FDA-Public Use
  Company Number: None

PATIENT
  Sex: Female
  Weight: 49.8957 kg

DRUGS (1)
  1. SINGULAIR [Suspect]
     Indication: SEASONAL ALLERGY
     Dosage: 1 PILL EACH MORNING PO
     Route: 048
     Dates: start: 20080401, end: 20080603

REACTIONS (2)
  - ABNORMAL DREAMS [None]
  - NIGHTMARE [None]
